FAERS Safety Report 15903105 (Version 2)
Quarter: 2025Q3

REPORT INFORMATION
  Report Type: Spontaneous
  Country: EU (occurrence: EU)
  Receive Date: 20190202
  Receipt Date: 20250721
  Transmission Date: 20251020
  Serious: Yes (Other)
  Sender: AUROBINDO
  Company Number: EU-AUROBINDO-AUR-APL-2019-004460

PATIENT
  Age: 59 Year
  Sex: Male

DRUGS (1)
  1. AMLODIPINE [Suspect]
     Active Substance: AMLODIPINE BESYLATE
     Indication: Hypertensive crisis
     Route: 065

REACTIONS (8)
  - Thrombosis [Unknown]
  - Gaze palsy [Recovered/Resolved]
  - Hemiplegia [Recovered/Resolved]
  - Ischaemic stroke [Recovered/Resolved]
  - Facial paresis [Recovered/Resolved]
  - Hypoperfusion [Recovered/Resolved]
  - Dysarthria [Recovered/Resolved]
  - Medication error [Unknown]
